FAERS Safety Report 4964770-6 (Version None)
Quarter: 2006Q2

REPORT INFORMATION
  Report Type: 
  Country: None (occurrence: None)
  Receive Date: 20060403
  Receipt Date: 20060328
  Transmission Date: 20061013
  Serious: Yes (Other)
  Sender: FDA-Public Use
  Company Number: GBWYE513528MAR06

PATIENT
  Age: 5 Year
  Sex: Female

DRUGS (1)
  1. IBUPROFEN [Suspect]
     Indication: GASTROENTERITIS
     Dosage: 100MG ORAL
     Route: 048
     Dates: start: 20031225, end: 20031226

REACTIONS (3)
  - PERITONEAL DIALYSIS [None]
  - RENAL FAILURE [None]
  - RENAL TUBULAR NECROSIS [None]
